FAERS Safety Report 4315341-6 (Version None)
Quarter: 2004Q1

REPORT INFORMATION
  Report Type: 
  Country: None (occurrence: None)
  Receive Date: 20040309
  Receipt Date: 20040223
  Transmission Date: 20041129
  Serious: Yes (Hospitalization)
  Sender: FDA-Public Use
  Company Number: US_0402101111

PATIENT
  Age: 4 Year
  Sex: Male
  Weight: 19 kg

DRUGS (1)
  1. STRATTERA [Suspect]
     Indication: ATTENTION DEFICIT/HYPERACTIVITY DISORDER
     Dosage: 40 MG/1 DAY
     Dates: start: 20020101, end: 20040217

REACTIONS (16)
  - ABNORMAL BEHAVIOUR [None]
  - CHOKING [None]
  - DISTURBANCE IN ATTENTION [None]
  - DISTURBANCE IN SOCIAL BEHAVIOUR [None]
  - DRUG INEFFECTIVE [None]
  - DYSPEPSIA [None]
  - FEELING ABNORMAL [None]
  - HAIR PLUCKING [None]
  - INSOMNIA [None]
  - IRRITABILITY [None]
  - MEDICATION ERROR [None]
  - RESTLESSNESS [None]
  - SPEECH DISORDER [None]
  - URINARY INCONTINENCE [None]
  - VOMITING [None]
  - WEIGHT DECREASED [None]
